FAERS Safety Report 7180610-1 (Version None)
Quarter: 2010Q4

REPORT INFORMATION
  Report Type: 
  Country: None (occurrence: None)
  Receive Date: 20101221
  Receipt Date: 20101214
  Transmission Date: 20110411
  Serious: Yes (Hospitalization)
  Sender: FDA-Public Use
  Company Number: CA-ABBOTT-10P-028-0691641-00

PATIENT
  Sex: Male

DRUGS (3)
  1. BIAXIN [Suspect]
     Indication: PNEUMONIA
     Route: 048
     Dates: start: 20070316, end: 20070317
  2. BIAXIN [Suspect]
     Indication: MALAISE
  3. BIAXIN [Suspect]
     Indication: PYREXIA

REACTIONS (7)
  - ABNORMAL BEHAVIOUR [None]
  - ASTHENIA [None]
  - FEELING ABNORMAL [None]
  - INCOHERENT [None]
  - MENTAL IMPAIRMENT [None]
  - PSYCHIATRIC DECOMPENSATION [None]
  - SCHIZOPHRENIFORM DISORDER [None]
